FAERS Safety Report 8940481 (Version 2)
Quarter: 2013Q2

REPORT INFORMATION
  Report Type: Spontaneous
  Country: IT (occurrence: IT)
  Receive Date: 20121203
  Receipt Date: 20130516
  Transmission Date: 20140414
  Serious: Yes (Hospitalization)
  Sender: FDA-Public Use
  Company Number: IT-ROCHE-1162774

PATIENT
  Age: 38 Year
  Sex: Female
  Weight: 52 kg

DRUGS (7)
  1. MABTHERA [Suspect]
     Indication: NON-HODGKIN^S LYMPHOMA
     Route: 042
     Dates: start: 20120904, end: 20121106
  2. ENDOXAN BAXTER [Suspect]
     Indication: NON-HODGKIN^S LYMPHOMA
     Route: 042
     Dates: start: 20120904, end: 20121015
  3. VINCRISTINA [Concomitant]
     Indication: NON-HODGKIN^S LYMPHOMA
     Route: 042
     Dates: start: 20120904, end: 20121015
  4. VINCRISTINA [Concomitant]
     Route: 065
     Dates: start: 201302, end: 201303
  5. ADRIBLASTINA [Concomitant]
     Indication: NON-HODGKIN^S LYMPHOMA
     Route: 042
     Dates: start: 20120904, end: 20121015
  6. ADRIBLASTINA [Concomitant]
     Route: 065
     Dates: start: 201302, end: 201303
  7. GRANULOKINE [Concomitant]
     Indication: NEUTROPENIA
     Dosage: 0.5 ML
     Route: 058
     Dates: start: 20121020, end: 20121022

REACTIONS (3)
  - Acute respiratory failure [Recovered/Resolved]
  - Lung consolidation [Recovered/Resolved]
  - Pyrexia [Recovered/Resolved]
